FAERS Safety Report 4270397-4 (Version None)
Quarter: 2004Q1

REPORT INFORMATION
  Report Type: 
  Country: None (occurrence: None)
  Receive Date: 20040113
  Receipt Date: 20040113
  Transmission Date: 20041129
  Serious: No
  Sender: FDA-Public Use
  Company Number: None

PATIENT
  Age: 76 Year
  Sex: Male

DRUGS (1)
  1. NPH ILETIN II [Suspect]
     Indication: DIABETES MELLITUS
     Dosage: 20 UNITS SQ QD
     Route: 058
     Dates: start: 20030412, end: 20030603

REACTIONS (2)
  - INJECTION SITE RASH [None]
  - INJECTION SITE URTICARIA [None]
